FAERS Safety Report 9252046 (Version 4)
Quarter: 2013Q4

REPORT INFORMATION
  Report Type: Report from Study
  Country: US (occurrence: US)
  Receive Date: 20130424
  Receipt Date: 20131029
  Transmission Date: 20140711
  Serious: Yes (Hospitalization)
  Sender: FDA-Public Use
  Company Number: US-ACTELION-A-NJ2013-82399

PATIENT
  Age: 58 Year
  Sex: Female

DRUGS (14)
  1. TRACLEER [Suspect]
     Indication: PULMONARY ARTERIAL HYPERTENSION
     Dosage: 125 MG, BID
     Route: 048
     Dates: start: 201310
  2. TRACLEER [Suspect]
     Dosage: 62.5 MG, BID
     Route: 048
     Dates: start: 2011, end: 201211
  3. VENTAVIS [Suspect]
     Indication: PULMONARY ARTERIAL HYPERTENSION
     Dosage: 5 MCG, 5XDAILY
     Route: 055
     Dates: start: 20120206
  4. LASIX [Concomitant]
  5. LORAZEPAM [Concomitant]
  6. ZAROXOLYN [Concomitant]
  7. INSULIN [Concomitant]
  8. CARDIAZEM [Concomitant]
  9. LOPRESSOR [Concomitant]
  10. LIPITOR [Concomitant]
  11. PLAVIX [Concomitant]
  12. PLAQUENIL [Concomitant]
  13. FLUTICASONE [Concomitant]
  14. METHOTREXATE [Concomitant]

REACTIONS (9)
  - Electrolyte imbalance [Recovered/Resolved]
  - Dehydration [Recovering/Resolving]
  - Syncope [Not Recovered/Not Resolved]
  - Presyncope [Recovering/Resolving]
  - Hypersensitivity [Not Recovered/Not Resolved]
  - Incorrect drug administration duration [Not Recovered/Not Resolved]
  - Dizziness [Not Recovered/Not Resolved]
  - Dyspnoea [Not Recovered/Not Resolved]
  - Oedema peripheral [Not Recovered/Not Resolved]
